FAERS Safety Report 5022247-6 (Version None)
Quarter: 2006Q2

REPORT INFORMATION
  Report Type: 
  Country: None (occurrence: None)
  Receive Date: 20060609
  Receipt Date: 20060530
  Transmission Date: 20061013
  Serious: Yes (Hospitalization, Other)
  Sender: FDA-Public Use
  Company Number: 2006UW10429

PATIENT
  Age: 64 Year
  Sex: Male

DRUGS (5)
  1. CRESTOR [Suspect]
     Route: 048
     Dates: start: 20040101, end: 20060512
  2. ZETIA [Suspect]
  3. TARKA [Suspect]
     Dosage: 2/240
  4. LOTREL [Concomitant]
     Dosage: 5/20
  5. ASPIRIN [Concomitant]

REACTIONS (11)
  - BLOOD CREATININE ABNORMAL [None]
  - FATIGUE [None]
  - GASTRITIS [None]
  - GASTROINTESTINAL HAEMORRHAGE [None]
  - HAEMOGLOBIN DECREASED [None]
  - HELICOBACTER INFECTION [None]
  - HYPOTENSION [None]
  - LETHARGY [None]
  - PALLOR [None]
  - RENAL FAILURE ACUTE [None]
  - SMALL INTESTINAL HAEMORRHAGE [None]
